FAERS Safety Report 25996075 (Version 1)
Quarter: 2025Q4

REPORT INFORMATION
  Report Type: Spontaneous
  Country: JP (occurrence: JP)
  Receive Date: 20251104
  Receipt Date: 20251104
  Transmission Date: 20260118
  Serious: Yes (Other)
  Sender: ELI LILLY AND COMPANY
  Company Number: JP-ELI_LILLY_AND_COMPANY-JP202510036355

PATIENT
  Sex: Female

DRUGS (2)
  1. DULOXETINE HYDROCHLORIDE [Suspect]
     Active Substance: DULOXETINE HYDROCHLORIDE
     Indication: Product used for unknown indication
     Dosage: UNK
     Route: 048
  2. DEPAS [DICLOFENAC;DICYCLOVERINE HYDROCHLORIDE [Concomitant]

REACTIONS (18)
  - Balance disorder [Not Recovered/Not Resolved]
  - Gait disturbance [Unknown]
  - Heart rate increased [Unknown]
  - Angioedema [Unknown]
  - Mucosal pain [Unknown]
  - Functional gastrointestinal disorder [Unknown]
  - Nasopharyngitis [Unknown]
  - Photopsia [Unknown]
  - Skin exfoliation [Unknown]
  - Dizziness [Unknown]
  - Head discomfort [Unknown]
  - Rash pruritic [Recovered/Resolved]
  - Abdominal discomfort [Unknown]
  - Weight increased [Unknown]
  - Decreased appetite [Unknown]
  - Malaise [Unknown]
  - Hyperhidrosis [Unknown]
  - Feeling abnormal [Unknown]
